FAERS Safety Report 5030843-5 (Version None)
Quarter: 2006Q2

REPORT INFORMATION
  Report Type: 
  Country: None (occurrence: None)
  Receive Date: 20060619
  Receipt Date: 20060608
  Transmission Date: 20061013
  Serious: Yes (Death, Life-Threatening)
  Sender: FDA-Public Use
  Company Number: 226122

PATIENT
  Age: 66 Year
  Sex: Female

DRUGS (4)
  1. MABTHERA(RITUXIMAB) CONC FOR SOLUTION FOR INFUSION [Suspect]
     Indication: LYMPHOMA
     Dosage: 375 MG/M2, Q2M, INTRAVENOUS
     Route: 042
     Dates: start: 20020129
  2. PREDNISONE [Concomitant]
  3. CITALOPRAM [Concomitant]
  4. LORAZEPAM [Concomitant]

REACTIONS (5)
  - HEPATITIS TOXIC [None]
  - HEPATOTOXICITY [None]
  - PSEUDOMONAL SEPSIS [None]
  - RESPIRATORY FAILURE [None]
  - SEPTIC SHOCK [None]
